FAERS Safety Report 4948593-X (Version None)
Quarter: 2006Q1

REPORT INFORMATION
  Report Type: 
  Country: None (occurrence: None)
  Receive Date: 20060201
  Receipt Date: 20051005
  Transmission Date: 20060701
  Serious: No
  Sender: FDA-Public Use
  Company Number: 2005PV002850

PATIENT
  Age: 50 Year
  Sex: Female
  Weight: 90.7194 kg

DRUGS (7)
  1. BYETTA [Suspect]
     Indication: DIABETES MELLITUS NON-INSULIN-DEPENDENT
     Dosage: 5 MCG; BID; SC
     Route: 058
     Dates: start: 20051002
  2. AVANDAMET [Concomitant]
  3. DIOVAN [Concomitant]
  4. ALDACTONE [Concomitant]
  5. SYNTHROID [Concomitant]
  6. LOZAR [Concomitant]
  7. MULTIVITAMIN [Concomitant]

REACTIONS (3)
  - DIZZINESS [None]
  - MENTAL IMPAIRMENT [None]
  - NAUSEA [None]
